FAERS Safety Report 8191537-0 (Version None)
Quarter: 2012Q1

REPORT INFORMATION
  Report Type: 
  Country: None (occurrence: None)
  Receive Date: 20120307
  Receipt Date: 20120228
  Transmission Date: 20120608
  Serious: Yes (Hospitalization, Other)
  Sender: FDA-Public Use
  Company Number: US-JHP PHARMACEUTICALS, LLC-JHP201200144

PATIENT
  Age: 29 Year
  Sex: Female

DRUGS (5)
  1. EPINEPHRINE [Suspect]
     Dosage: 1 MG
     Route: 030
  2. EPINEPHRINE [Suspect]
     Indication: ANAPHYLACTIC REACTION
     Dosage: 1 MG
     Route: 030
  3. DIPHENHYDRAMINE HCL [Concomitant]
     Indication: ANAPHYLACTIC REACTION
     Dosage: 25 MG, UNK
     Route: 042
  4. SULFAMETHOXAZOLE AND TRIMETHOPRIM [Concomitant]
     Indication: UPPER RESPIRATORY TRACT INFECTION
  5. METHYLPREDNISOLONE [Concomitant]
     Indication: ANAPHYLACTIC REACTION
     Dosage: 80 MG, UNK
     Route: 042

REACTIONS (3)
  - HYPOTENSION [None]
  - BRADYCARDIA [None]
  - TOXICITY TO VARIOUS AGENTS [None]
